FAERS Safety Report 9337860 (Version 5)
Quarter: 2013Q4

REPORT INFORMATION
  Report Type: Spontaneous
  Country: US (occurrence: US)
  Receive Date: 20130607
  Receipt Date: 20131107
  Transmission Date: 20140711
  Serious: Yes (Other)
  Sender: FDA-Public Use
  Company Number: US-ALLERGAN-1307986US

PATIENT
  Age: 51 Year
  Sex: Female
  Weight: 67.57 kg

DRUGS (4)
  1. BOTOX [Suspect]
     Indication: TORTICOLLIS
     Dosage: 200 UNITS, SINGLE
     Route: 030
     Dates: start: 20130305, end: 20130305
  2. BOTOX [Suspect]
     Dosage: 100 UNITS, SINGLE
     Route: 030
     Dates: start: 201207, end: 201207
  3. BOTOX [Suspect]
     Dosage: 100 UNITS, SINGLE
     Route: 030
     Dates: start: 201203, end: 201203
  4. BLOOD PRESSURE MEDICATION [Suspect]
     Indication: HYPERTENSION

REACTIONS (18)
  - Throat tightness [Recovered/Resolved]
  - Throat irritation [Recovered/Resolved]
  - Anaphylactic reaction [Recovered/Resolved]
  - Dyspnoea [Recovered/Resolved]
  - Dysphagia [Not Recovered/Not Resolved]
  - Oropharyngeal spasm [Recovered/Resolved]
  - Muscle spasms [Recovered/Resolved]
  - Muscle spasms [Recovered/Resolved]
  - Muscle spasms [Recovered/Resolved]
  - Throat irritation [Recovered/Resolved]
  - Condition aggravated [Unknown]
  - Oesophageal injury [Unknown]
  - Injection site haemorrhage [Recovered/Resolved]
  - Drug ineffective [Unknown]
  - Gastrooesophageal sphincter insufficiency [Unknown]
  - Oesophageal hypomotility [Not Recovered/Not Resolved]
  - Blood pressure increased [Unknown]
  - Off label use [Unknown]
